FAERS Safety Report 9295766 (Version 1)
Quarter: 2013Q1

REPORT INFORMATION
  Report Type: Spontaneous
  Country: US (occurrence: None)
  Receive Date: 20121227
  Receipt Date: 20121227
  Transmission Date: 20140127
  Serious: Yes (Other)
  Sender: FDA-Public Use
  Company Number: PHEH2012US003196

PATIENT
  Age: 13 Year
  Sex: Male
  Weight: 51.9 kg

DRUGS (6)
  1. EXJADE [Suspect]
     Indication: SICKLE CELL ANAEMIA
     Dosage: MONDAY TO FRIDAY
     Route: 048
     Dates: start: 20070126, end: 20120103
  2. FOLIC ACID (FOLIC ACID) [Concomitant]
  3. HYDROXYUREA (HYDROXYCARBAMIDE) [Concomitant]
  4. ANTIBIOTICS (NO INGREDIENTS/SUBSTANCES) [Concomitant]
  5. CEFTRIAXONE (CEFTRIAXONE) [Concomitant]
  6. ERYTHROMYCIN (ERYTHROMYCIN) [Concomitant]

REACTIONS (8)
  - Viral infection [None]
  - Renal failure acute [None]
  - Cough [None]
  - Pyrexia [None]
  - Eye pain [None]
  - Pollakiuria [None]
  - Blood pressure decreased [None]
  - Blood creatinine increased [None]
